FAERS Safety Report 19907543 (Version 1)
Quarter: 2021Q4

REPORT INFORMATION
  Report Type: Spontaneous
  Country: KR (occurrence: KR)
  Receive Date: 20211001
  Receipt Date: 20211001
  Transmission Date: 20220303
  Serious: Yes (Hospitalization)
  Sender: FDA-Public Use
  Company Number: KR-VIIV HEALTHCARE ULC-KR2021APC204179

PATIENT
  Age: 70 Year
  Sex: Female
  Weight: 43 kg

DRUGS (8)
  1. KIVEXA [Suspect]
     Active Substance: ABACAVIR SULFATE\LAMIVUDINE
     Indication: HIV infection
     Dosage: 1 DF(TABLET), QD
     Route: 048
     Dates: start: 20120229
  2. ALPRAZOLAM [Concomitant]
     Active Substance: ALPRAZOLAM
     Indication: Depression
     Dosage: 0.12 MG, QD
     Route: 048
     Dates: start: 20160318, end: 20160427
  3. ATAZANAVIR [Concomitant]
     Active Substance: ATAZANAVIR
     Indication: HIV infection
     Dosage: 400 MG, QD
     Route: 048
     Dates: start: 20090304
  4. ESCITALOPRAM [Concomitant]
     Active Substance: ESCITALOPRAM OXALATE
     Indication: Depression
     Dosage: 10 MG, QD
     Route: 048
     Dates: start: 20160318
  5. IBANDRONIC ACID [Concomitant]
     Active Substance: IBANDRONIC ACID
     Indication: Osteoporosis
     Dosage: 150 MG, QD
     Route: 048
     Dates: start: 20160326, end: 20160425
  6. LORAZEPAM [Concomitant]
     Active Substance: LORAZEPAM
     Indication: Depression
     Dosage: 0.5 MG, QD
     Route: 048
     Dates: start: 20160318
  7. MISOPROSTOL [Concomitant]
     Active Substance: MISOPROSTOL
     Indication: Product used for unknown indication
     Dosage: 200 UG, QD
     Route: 048
     Dates: start: 20160315, end: 20160524
  8. POLYSTYRENE SULFONIC ACID [Concomitant]
     Active Substance: POLYSTYRENE SULFONIC ACID
     Indication: Product used for unknown indication
     Dosage: 5 G, QD
     Route: 048
     Dates: start: 20160314, end: 20160320

REACTIONS (1)
  - Fracture [Unknown]
